FAERS Safety Report 6741788-4 (Version None)
Quarter: 2010Q2

REPORT INFORMATION
  Report Type: 
  Country: None (occurrence: None)
  Receive Date: 20100526
  Receipt Date: 20100518
  Transmission Date: 20101027
  Serious: Yes (Disabling)
  Sender: FDA-Public Use
  Company Number: BR-ROCHE-704197

PATIENT
  Age: 73 Year
  Sex: Female
  Weight: 58 kg

DRUGS (1)
  1. AVASTIN [Suspect]
     Indication: DRUG USE FOR UNKNOWN INDICATION
     Dosage: ROUTE: OCULAR; FREQUENCY REPORTED AS ONE SINGLE DOSE
     Route: 031
     Dates: start: 20070101, end: 20070101

REACTIONS (2)
  - BLINDNESS [None]
  - EYE INJURY [None]
